FAERS Safety Report 23704619 (Version 1)
Quarter: 2024Q2

REPORT INFORMATION
  Report Type: Spontaneous
  Country: IT (occurrence: IT)
  Receive Date: 20240404
  Receipt Date: 20240404
  Transmission Date: 20240715
  Serious: Yes (Death, Other)
  Sender: FDA-Public Use
  Company Number: None

PATIENT
  Age: 63 Year
  Sex: Female

DRUGS (2)
  1. LEVOFLOXACIN [Suspect]
     Active Substance: LEVOFLOXACIN
     Indication: Antibiotic therapy
     Dosage: 1000 MG, QD (500 MG, 2X/DAY (EVERY 12 HOURS))
     Route: 065
  2. MEROPENEM [Suspect]
     Active Substance: MEROPENEM
     Indication: Antibiotic therapy
     Dosage: 3 G, QD (1 G, 3X/DAY (EVERY 8 HOURS))
     Route: 065

REACTIONS (4)
  - Septic shock [Fatal]
  - Hypotension [Unknown]
  - Oxygen saturation decreased [Unknown]
  - Tachycardia [Unknown]
